FAERS Safety Report 18617857 (Version 2)
Quarter: 2021Q1

REPORT INFORMATION
  Report Type: Spontaneous
  Country: US (occurrence: US)
  Receive Date: 20201215
  Receipt Date: 20210122
  Transmission Date: 20210419
  Serious: Yes (Death)
  Sender: FDA-Public Use
  Company Number: US-ACCORD-211052

PATIENT
  Age: 57 Year
  Sex: Female

DRUGS (18)
  1. CLOZAPINE ACCORD [Suspect]
     Active Substance: CLOZAPINE
     Indication: SCHIZOPHRENIA
     Dosage: YEARS AGO, STRENGTH:100 MG
     Route: 048
     Dates: start: 20150509
  2. DIVALPROEX [Concomitant]
     Active Substance: DIVALPROEX SODIUM
     Dosage: TWICE A DAY
     Route: 048
  3. PAROXETINE. [Concomitant]
     Active Substance: PAROXETINE
     Dosage: ONCE A DAY
     Route: 048
  4. FISH OIL [Concomitant]
     Active Substance: FISH OIL
  5. ERGOCALCIFEROL. [Concomitant]
     Active Substance: ERGOCALCIFEROL
     Dosage: ONCE A WEEK
  6. CETIRIZINE [Concomitant]
     Active Substance: CETIRIZINE HYDROCHLORIDE
     Dosage: BEDTIME
     Route: 048
  7. DIVALPROEX [Concomitant]
     Active Substance: DIVALPROEX SODIUM
     Indication: SEIZURE
     Dosage: TWICE A DAY
     Route: 048
     Dates: start: 20201007
  8. METFORMIN [Concomitant]
     Active Substance: METFORMIN HYDROCHLORIDE
     Dosage: TWICE A DAY
     Route: 048
  9. BUPROPION/BUPROPION HYDROCHLORIDE [Concomitant]
     Active Substance: BUPROPION HYDROCHLORIDE
     Dosage: ONCE DAY
     Route: 048
  10. LEVEMIR [Concomitant]
     Active Substance: INSULIN DETEMIR
     Dosage: BEDTIME
  11. CLOZAPINE MAYNE [Suspect]
     Active Substance: CLOZAPINE
     Indication: SCHIZOPHRENIA
     Dosage: STRENGTH :25 MG
     Route: 048
     Dates: start: 20150509
  12. INVEGA [Concomitant]
     Active Substance: PALIPERIDONE
     Dosage: ONCE DAY
  13. ATORVASTATIN [Concomitant]
     Active Substance: ATORVASTATIN
     Dosage: BEDTIME
     Route: 048
  14. IRON [Concomitant]
     Active Substance: IRON
     Dosage: 2 TABLETS, ONCE A DAY
  15. MAGNESIUM OXIDE. [Concomitant]
     Active Substance: MAGNESIUM OXIDE
     Dosage: ONCE A DAY
     Route: 048
  16. FENOFIBRATE. [Concomitant]
     Active Substance: FENOFIBRATE
     Dosage: ONCE A DAY
     Route: 048
  17. AMLODIPINE [Concomitant]
     Active Substance: AMLODIPINE BESYLATE
     Dosage: ONCE A DAY
     Route: 048
  18. CYANOCOBALAMIN. [Concomitant]
     Active Substance: CYANOCOBALAMIN
     Dosage: 500MGMCG,ONC E
     Route: 048

REACTIONS (1)
  - Seizure [Fatal]
